FAERS Safety Report 12600002 (Version 3)
Quarter: 2016Q4

REPORT INFORMATION
  Report Type: Spontaneous
  Country: US (occurrence: US)
  Receive Date: 20160727
  Receipt Date: 20161108
  Transmission Date: 20170207
  Serious: Yes (Other)
  Sender: FDA-Public Use
  Company Number: US-PFIZER INC-2016352111

PATIENT
  Age: 64 Year
  Sex: Female
  Weight: 46 kg

DRUGS (37)
  1. CALCITRIOL. [Concomitant]
     Active Substance: CALCITRIOL
     Indication: VITAMIN D DEFICIENCY
     Dosage: 0.25 UG, 2X/DAY EVERY 12 HOURS
     Route: 048
     Dates: start: 1985
  2. INSULIN LISPRO [Concomitant]
     Active Substance: INSULIN LISPRO
     Dosage: UNK UNK, 4X/DAY(100 MG UNIT/ML SOLUTION; 1-5 UNITS )(ROUTE 4 TIMES DAILY (TAKE WITH MEALS AND AT BED
     Route: 058
  3. IRON [Concomitant]
     Active Substance: IRON
     Dosage: UNK UNK, DAILY
     Route: 048
  4. CARVEDILOL. [Concomitant]
     Active Substance: CARVEDILOL
     Indication: HYPERTENSION
     Dosage: 25 MG, 2X/DAY EVERY 12 HOURS
     Route: 048
     Dates: start: 2015
  5. CLOPIDOGREL [Concomitant]
     Active Substance: CLOPIDOGREL BISULFATE
     Indication: PROPHYLAXIS
     Dosage: 75 MG, 1X/DAY
     Route: 048
     Dates: start: 2011
  6. CALCIUM CARBONATE. [Concomitant]
     Active Substance: CALCIUM CARBONATE
     Dosage: 600 MG, 3X/DAY
     Dates: start: 1985
  7. CALCIUM CARBONATE. [Concomitant]
     Active Substance: CALCIUM CARBONATE
     Dosage: 1200 MG, 3X/DAY
     Route: 048
  8. CHOLECALCIFEROL [Concomitant]
     Active Substance: CHOLECALCIFEROL
     Dosage: 1000 IU, 1X/DAY
     Dates: start: 1995
  9. LEVETIRACETAM. [Concomitant]
     Active Substance: LEVETIRACETAM
     Dosage: 500 MG, 2X/DAY
     Route: 048
  10. LOSARTAN. [Concomitant]
     Active Substance: LOSARTAN
     Indication: HYPERTENSION
     Dosage: 25 MG, 1X/DAY
     Route: 048
  11. NIFEDIPINE. [Concomitant]
     Active Substance: NIFEDIPINE
     Indication: HYPERTENSION
     Dosage: 60 MG, 2X/DAY EVERY 12 HOURS
     Route: 048
     Dates: start: 2009
  12. RESTASIS [Concomitant]
     Active Substance: CYCLOSPORINE
     Dosage: 2 GTT, 2X/DAY(
     Route: 047
     Dates: start: 2008
  13. ACETAMINOPHEN. [Concomitant]
     Active Substance: ACETAMINOPHEN
     Indication: PAIN
     Dosage: 325 MG, AS NEEDED(TAKE 1-2 TABLETS BY MOUTH EVERY 4 HOURS)
     Route: 048
  14. RAPAMUNE [Suspect]
     Active Substance: SIROLIMUS
     Dosage: 1 MG, AS NEEDED (TAKE 1 TABLET BY MOUTH AS DIRECTED PRN)
     Route: 048
  15. ALLOPURINOL. [Concomitant]
     Active Substance: ALLOPURINOL
     Dosage: 100 MG, DAILY
     Route: 048
  16. ASPIRIN. [Concomitant]
     Active Substance: ASPIRIN
     Indication: THROMBOSIS PROPHYLAXIS
     Dosage: 81 MG, 1X/DAY
     Route: 048
     Dates: start: 2011
  17. LEVOTHYROXINE. [Concomitant]
     Active Substance: LEVOTHYROXINE
     Indication: HYPOTHYROIDISM
     Dosage: 75 UG, 1X/DAY
     Dates: start: 2006
  18. ALLOPURINOL. [Concomitant]
     Active Substance: ALLOPURINOL
     Indication: GOUT
     Dosage: 100 MG, 1X/DAY
     Dates: start: 2009
  19. NIFEDIPINE. [Concomitant]
     Active Substance: NIFEDIPINE
     Dosage: 120 MG, DAILY
     Route: 048
  20. MAGNESIUM [Concomitant]
     Active Substance: MAGNESIUM
     Dosage: 800 MG, 2X/DAY (TAKE 2 TABLETS BY MOUTH 2 TIMES DAILY)
     Route: 048
  21. INSULIN [Concomitant]
     Active Substance: INSULIN NOS
     Dosage: UNK
     Dates: start: 2015
  22. MULTIVITAMIN [Concomitant]
     Active Substance: VITAMINS
     Dosage: 1 DF, DAILY
     Dates: start: 1995
  23. LIPITOR [Suspect]
     Active Substance: ATORVASTATIN CALCIUM
     Dosage: 20 MG, DAILY (AT BEDTIME)
     Route: 048
  24. LOSARTAN. [Concomitant]
     Active Substance: LOSARTAN
     Dosage: 25 MG, DAILY
     Route: 048
  25. JANUVIA [Concomitant]
     Active Substance: SITAGLIPTIN PHOSPHATE
     Indication: BLOOD GLUCOSE ABNORMAL
     Dosage: 100 MG, 1X/DAY
     Dates: start: 2015
  26. MYFORTIC [Concomitant]
     Active Substance: MYCOPHENOLATE SODIUM
     Indication: RENAL TRANSPLANT
     Dosage: 720 MG, 2X/DAY
     Route: 048
     Dates: start: 2014
  27. RAPAMUNE [Suspect]
     Active Substance: SIROLIMUS
     Indication: PROPHYLAXIS AGAINST TRANSPLANT REJECTION
     Dosage: 10 DF, WEEKLY
     Dates: start: 2009
  28. RAPAMUNE [Suspect]
     Active Substance: SIROLIMUS
     Dosage: 1 MG, CYCLIC (TAKE 1 MG PO ON SUN, TUE, THU, SAT)
     Route: 048
  29. RAPAMUNE [Suspect]
     Active Substance: SIROLIMUS
     Dosage: 2 MG, CYCLIC (2 MG PO MON, WED, FRI)
     Route: 048
  30. FISH OIL [Concomitant]
     Active Substance: FISH OIL
     Dosage: 1000 MG, 3X/DAY
     Route: 048
     Dates: start: 2009
  31. MAGNESIUM [Concomitant]
     Active Substance: MAGNESIUM
     Dosage: 800 MG, 2X/DAY
     Dates: start: 2014
  32. SERTRALINE [Concomitant]
     Active Substance: SERTRALINE HYDROCHLORIDE
     Indication: DEPRESSION
     Dosage: 50 MG, 1X/DAY
     Route: 048
     Dates: start: 2015
  33. DOCUSATE [Concomitant]
     Active Substance: DOCUSATE
     Indication: FAECES HARD
     Dosage: 100 MG, AS NEEDED(1 CAPSULE BY MOUTH 2 TIMES DAILY AS NEEDED)
     Route: 048
  34. RAPAMUNE [Suspect]
     Active Substance: SIROLIMUS
     Dosage: 1 MG, WEEKLY (7 DAYS PER WEEK)
     Dates: start: 200902
  35. RAPAMUNE [Suspect]
     Active Substance: SIROLIMUS
     Dosage: 2 MG, CYCLIC (MONDAY, WEDNESDAY, FRIDAY)
     Route: 048
  36. GLIMEPIRIDE. [Concomitant]
     Active Substance: GLIMEPIRIDE
     Indication: DIABETES MELLITUS
     Dosage: 2 MG, 1X/DAY(1 TABLET BY MOUTH DAILY WITH BREAKFAST.)
     Dates: start: 2015
  37. OCUVITE [Concomitant]
     Active Substance: VITAMINS
     Indication: VISUAL IMPAIRMENT
     Dosage: UNK UNK, 1X/DAY
     Route: 048
     Dates: start: 2014

REACTIONS (3)
  - Head injury [Unknown]
  - Fall [Unknown]
  - Seizure [Recovered/Resolved]

NARRATIVE: CASE EVENT DATE: 20151128
